FAERS Safety Report 15159597 (Version 2)
Quarter: 2018Q3

REPORT INFORMATION
  Report Type: Spontaneous
  Country: DE (occurrence: DE)
  Receive Date: 20180718
  Receipt Date: 20180813
  Transmission Date: 20181010
  Serious: Yes (Life-Threatening, Other)
  Sender: FDA-Public Use
  Company Number: DE-ALLERGAN-1835690US

PATIENT
  Age: 81 Year
  Sex: Male
  Weight: 86 kg

DRUGS (7)
  1. TROMCARDIN COMPLEX [Concomitant]
     Indication: PRODUCT USED FOR UNKNOWN INDICATION
     Route: 065
  2. BLOPRESS [Concomitant]
     Active Substance: CANDESARTAN CILEXETIL
     Indication: PRODUCT USED FOR UNKNOWN INDICATION
     Route: 065
  3. AMLODIPINE [Concomitant]
     Active Substance: AMLODIPINE BESYLATE
     Indication: PRODUCT USED FOR UNKNOWN INDICATION
     Dosage: 4 MG, UNK
     Route: 065
  4. ASPIRIN. [Concomitant]
     Active Substance: ASPIRIN
     Indication: PRODUCT USED FOR UNKNOWN INDICATION
     Dosage: EVERY 3 DAYS
     Route: 065
  5. TAMSULOSIN [Concomitant]
     Active Substance: TAMSULOSIN
     Indication: PRODUCT USED FOR UNKNOWN INDICATION
     Route: 065
  6. SILODOSIN ? BP [Suspect]
     Active Substance: SILODOSIN
     Dosage: 16 MG, QD
     Route: 048
     Dates: end: 201706
  7. SILODOSIN ? BP [Suspect]
     Active Substance: SILODOSIN
     Indication: PRODUCT USED FOR UNKNOWN INDICATION
     Dosage: PRN EVERY 6?8 DAYS
     Route: 048
     Dates: start: 201806

REACTIONS (4)
  - Intentional product use issue [Unknown]
  - Off label use [Unknown]
  - Loss of consciousness [Unknown]
  - Wrong technique in product usage process [Unknown]
